FAERS Safety Report 6035373-X (Version None)
Quarter: 2009Q1

REPORT INFORMATION
  Report Type: 
  Country: None (occurrence: None)
  Receive Date: 20090109
  Receipt Date: 20090109
  Transmission Date: 20090719
  Serious: Yes (Life-Threatening, Hospitalization, Other)
  Sender: FDA-Public Use
  Company Number: None

PATIENT
  Age: 43 Year
  Sex: Male
  Weight: 140.6151 kg

DRUGS (2)
  1. TORADOL [Suspect]
     Indication: ANALGESIA
     Dosage: 120MG EVERY 6 HRS IV
     Route: 042
  2. CELEBREX [Suspect]
     Indication: ANALGESIA
     Dosage: 120 MG TWICE DAILY PO
     Route: 048

REACTIONS (9)
  - ABDOMINAL PAIN UPPER [None]
  - CONJUNCTIVITIS [None]
  - DOCUMENTED HYPERSENSITIVITY TO ADMINISTERED DRUG [None]
  - DRUG HYPERSENSITIVITY [None]
  - HAEMATOCHEZIA [None]
  - HAEMORRHOIDS [None]
  - MOUTH ULCERATION [None]
  - NEOPLASM [None]
  - SMALL INTESTINAL PERFORATION [None]
